FAERS Safety Report 20518925 (Version 1)
Quarter: 2022Q1

REPORT INFORMATION
  Report Type: Spontaneous
  Country: US (occurrence: None)
  Receive Date: 20220225
  Receipt Date: 20220225
  Transmission Date: 20220424
  Serious: Yes (Other)
  Sender: FDA-Public Use
  Company Number: None

PATIENT
  Age: 70 Year
  Sex: Female
  Weight: 66.6 kg

DRUGS (4)
  1. DOCETAXEL [Suspect]
     Active Substance: DOCETAXEL
     Indication: Breast cancer
     Dosage: OTHER FREQUENCY : EVERY 21 DAYS.;?
     Route: 041
     Dates: start: 20211216, end: 20220106
  2. CYCLOPHOSPHAMIDE [Concomitant]
     Active Substance: CYCLOPHOSPHAMIDE
     Dates: start: 20211216, end: 20220106
  3. FOSAPREPITANT [Concomitant]
     Active Substance: FOSAPREPITANT
     Dates: start: 20211216, end: 20220106
  4. PALONOSETRON [Concomitant]
     Active Substance: PALONOSETRON
     Dates: start: 20211206, end: 20220106

REACTIONS (3)
  - Urticaria [None]
  - Rash [None]
  - Biopsy muscle abnormal [None]

NARRATIVE: CASE EVENT DATE: 20220117
